FAERS Safety Report 9847025 (Version 1)
Quarter: 2014Q1

REPORT INFORMATION
  Report Type: Spontaneous
  Country: FR (occurrence: FR)
  Receive Date: 20140127
  Receipt Date: 20140127
  Transmission Date: 20141002
  Serious: Yes (Hospitalization)
  Sender: FDA-Public Use
  Company Number: FR-US-EMD SERONO, INC.-7264170

PATIENT
  Age: 33 Year
  Sex: Female

DRUGS (6)
  1. GONAL-F [Suspect]
     Indication: IN VITRO FERTILISATION
     Dosage: 900 IU/1.5 ML (66 MICROGRAM / 1.5 ML)
     Route: 058
     Dates: start: 20130111
  2. GONAL-F [Suspect]
     Dosage: 900 IU/1.5 ML (66 MICROGRAM / 1.5 ML)
     Route: 058
     Dates: end: 20130120
  3. GONADOTROPHINE-ENDO [Suspect]
     Indication: IN VITRO FERTILISATION
     Dosage: 5000 IU/L ML, LYOPHILISATE AND SOLUTION FOR INTRAMUSCULAR PARENTERAL USE
     Route: 030
     Dates: start: 20130121
  4. ENANTONE /00726901/ [Suspect]
     Indication: IN VITRO FERTILISATION
     Dosage: SINGLE DOSE
     Dates: start: 201212
  5. OROMONE [Suspect]
     Indication: IN VITRO FERTILISATION
     Route: 048
     Dates: start: 20130121
  6. UTROGESTAN [Suspect]
     Indication: IN VITRO FERTILISATION
     Dosage: ORAL SOFT CAPSULE OR VAGINAL
     Route: 067
     Dates: start: 20130121

REACTIONS (2)
  - Haematocrit increased [Recovered/Resolved]
  - Ovarian hyperstimulation syndrome [Recovered/Resolved]
